FAERS Safety Report 8954992 (Version 2)
Quarter: 2013Q3

REPORT INFORMATION
  Report Type: Spontaneous
  Country: CA (occurrence: CA)
  Receive Date: 20121207
  Receipt Date: 20130702
  Transmission Date: 20140515
  Serious: Yes (Other)
  Sender: FDA-Public Use
  Company Number: CHPA2012CA024897

PATIENT
  Age: 49 Year
  Sex: Female

DRUGS (3)
  1. HABITROL [Suspect]
     Indication: SMOKING CESSATION THERAPY
     Dosage: 21 MG, QD
     Route: 062
     Dates: start: 20121101
  2. HABITROL [Suspect]
     Dosage: 21 MG, QD
     Route: 062
  3. THRIVE 4 MG [Suspect]
     Indication: SMOKING CESSATION THERAPY
     Dosage: 10 DF, QD
     Route: 048
     Dates: start: 20121101

REACTIONS (6)
  - Pneumonia [Recovered/Resolved]
  - Application site rash [Recovered/Resolved]
  - Overdose [Unknown]
  - Treatment noncompliance [Unknown]
  - Product quality issue [None]
  - Product adhesion issue [None]
